FAERS Safety Report 5524514-6 (Version None)
Quarter: 2007Q4

REPORT INFORMATION
  Report Type: 
  Country: None (occurrence: None)
  Receive Date: 20071122
  Receipt Date: 20071115
  Transmission Date: 20080405
  Serious: Yes (Other)
  Sender: FDA-Public Use
  Company Number: PHBS2006DK18992

PATIENT
  Age: 71 Year
  Sex: Female

DRUGS (4)
  1. AREDIA [Suspect]
     Indication: METASTASES TO BONE
     Route: 042
     Dates: start: 20050908, end: 20060915
  2. BONDRONAT [Suspect]
     Indication: METASTASES TO BONE
     Dosage: 50 MG/DAY
     Dates: start: 20051007
  3. BONDRONAT [Suspect]
     Dates: start: 20060130, end: 20060915
  4. FEMARA [Concomitant]
     Dates: start: 20050902

REACTIONS (10)
  - COMPUTERISED TOMOGRAM ABNORMAL [None]
  - DRUG INEFFECTIVE [None]
  - DYSPEPSIA [None]
  - EYE PAIN [None]
  - IMPAIRED HEALING [None]
  - OSTEOARTHRITIS [None]
  - OSTEONECROSIS [None]
  - PAIN [None]
  - TOOTH DISORDER [None]
  - TOOTH EXTRACTION [None]
